FAERS Safety Report 8214616-8 (Version None)
Quarter: 2012Q1

REPORT INFORMATION
  Report Type: 
  Country: None (occurrence: None)
  Receive Date: 20120316
  Receipt Date: 20120307
  Transmission Date: 20120608
  Serious: Yes (Other)
  Sender: FDA-Public Use
  Company Number: CA-JNJFOC-20120304268

PATIENT
  Sex: Female

DRUGS (4)
  1. ANTI INFLAMMATORY [Concomitant]
     Indication: ANTIINFLAMMATORY THERAPY
     Route: 065
  2. ALL OTHER THERAPEUTICS [Concomitant]
     Indication: PREMEDICATION
     Route: 065
  3. REMICADE [Suspect]
     Indication: COLITIS ULCERATIVE
     Route: 042
     Dates: end: 20110401
  4. CORTISONE ACETATE [Concomitant]
     Indication: PREMEDICATION
     Route: 065

REACTIONS (4)
  - CONSTIPATION [None]
  - HOT FLUSH [None]
  - PAIN IN EXTREMITY [None]
  - OSTEOARTHRITIS [None]
